FAERS Safety Report 5453132-3 (Version None)
Quarter: 2007Q3

REPORT INFORMATION
  Report Type: 
  Country: None (occurrence: None)
  Receive Date: 20070914
  Receipt Date: 20070906
  Transmission Date: 20080115
  Serious: Yes (Hospitalization)
  Sender: FDA-Public Use
  Company Number: US-ABBOTT-07P-163-0416333-00

PATIENT
  Sex: Female
  Weight: 86.26 kg

DRUGS (1)
  1. HUMIRA [Suspect]
     Indication: PSORIATIC ARTHROPATHY
     Route: 058
     Dates: start: 20040101, end: 20070801

REACTIONS (3)
  - DIARRHOEA [None]
  - GASTROINTESTINAL INFECTION [None]
  - VOMITING [None]
